FAERS Safety Report 4712632-1 (Version None)
Quarter: 2005Q3

REPORT INFORMATION
  Report Type: 
  Country: None (occurrence: None)
  Receive Date: 20050711
  Receipt Date: 20050628
  Transmission Date: 20060218
  Serious: Yes (Hospitalization, Other)
  Sender: FDA-Public Use
  Company Number: 2005093547

PATIENT
  Age: 69 Year
  Sex: Male
  Weight: 80.7403 kg

DRUGS (5)
  1. CAVERJECT [Suspect]
     Indication: ERECTILE DYSFUNCTION
     Dosage: 25 MCG PARENTERAL
     Route: 051
     Dates: end: 20030101
  2. LISINOPRIL [Concomitant]
  3. DOXAZOSIN (DOXAZOSIN) [Concomitant]
  4. CHONDROITIN/GLUCOSAMINE/METHYLSULFONYLMETHANE (CONDROITIN, GLUCOSAMINE [Concomitant]
  5. VITAMINS (VITAMINS) [Concomitant]

REACTIONS (4)
  - GASTROOESOPHAGEAL REFLUX DISEASE [None]
  - INJECTION SITE PAIN [None]
  - PENILE PAIN [None]
  - PROSTATECTOMY [None]
